FAERS Safety Report 7403034-8 (Version None)
Quarter: 2011Q1

REPORT INFORMATION
  Report Type: 
  Country: None (occurrence: None)
  Receive Date: 20110331
  Receipt Date: 20110321
  Transmission Date: 20110831
  Serious: Yes (Death)
  Sender: FDA-Public Use
  Company Number: BR-001601

PATIENT
  Sex: Male
  Weight: 18 kg

DRUGS (1)
  1. NAGLAZYME [Suspect]
     Indication: MUCOPOLYSACCHARIDOSIS VI
     Dosage: (1 MG/KG 1X/WEEK INTRAVENOUS DRIP)
     Route: 041

REACTIONS (2)
  - OBSTRUCTIVE AIRWAYS DISORDER [None]
  - CARDIO-RESPIRATORY ARREST [None]
